FAERS Safety Report 5357199-2 (Version None)
Quarter: 2007Q2

REPORT INFORMATION
  Report Type: 
  Country: None (occurrence: None)
  Receive Date: 20070614
  Receipt Date: 20070604
  Transmission Date: 20071010
  Serious: Yes (Hospitalization)
  Sender: FDA-Public Use
  Company Number: US-AMGEN-STX218259

PATIENT
  Sex: Female
  Weight: 84.9 kg

DRUGS (15)
  1. ENBREL [Suspect]
     Indication: RHEUMATOID ARTHRITIS
     Route: 058
     Dates: start: 20040414, end: 20070301
  2. ENBREL [Suspect]
     Indication: PSORIATIC ARTHROPATHY
  3. PLAQUENIL [Concomitant]
     Route: 065
     Dates: start: 20040101
  4. METHOTREXATE [Concomitant]
     Route: 065
     Dates: start: 20040101, end: 20070301
  5. FOLIC ACID [Concomitant]
  6. DARVOCET [Concomitant]
  7. TOPROL-XL [Concomitant]
  8. BENAZEPRIL HYDROCHLORIDE [Concomitant]
  9. ATACAND HCT [Concomitant]
  10. NORVASC [Concomitant]
  11. ACIPHEX [Concomitant]
  12. LEVOTHYROXINE SODIUM [Concomitant]
  13. TRICOR [Concomitant]
  14. ZOCOR [Concomitant]
  15. LYRICA [Concomitant]

REACTIONS (2)
  - LUNG CANCER METASTATIC [None]
  - PROCEDURAL COMPLICATION [None]
